FAERS Safety Report 19510969 (Version 2)
Quarter: 2021Q3

REPORT INFORMATION
  Report Type: Report from Study
  Country: IL (occurrence: IL)
  Receive Date: 20210709
  Receipt Date: 20210723
  Transmission Date: 20211014
  Serious: Yes (Hospitalization, Other)
  Sender: FDA-Public Use
  Company Number: IL-SA-2018SA025144

PATIENT
  Age: 45 Year
  Sex: Female
  Weight: 62 kg

DRUGS (10)
  1. ASPIRIN [ACETYLSALICYLIC ACID] [Concomitant]
     Active Substance: ASPIRIN
     Dosage: UNK
     Route: 065
  2. OMEPRADEX [Concomitant]
     Active Substance: OMEPRAZOLE
  3. MICROPIRIN [Concomitant]
     Active Substance: ASPIRIN
     Dosage: 100 MG
     Route: 065
  4. TOPAMAX [Concomitant]
     Active Substance: TOPIRAMATE
     Dosage: 50 MG
     Route: 065
  5. ELATROL [Concomitant]
     Dosage: 25 MG
     Route: 065
  6. AGALSIDASE BETA [Suspect]
     Active Substance: AGALSIDASE BETA
     Indication: FABRY^S DISEASE
     Dosage: 70 MG, QOW
     Route: 042
     Dates: start: 20180111
  7. DOXYLIN [DOXYCYCLINE] [Concomitant]
  8. GODAMED [Concomitant]
     Active Substance: ASPIRIN
     Dosage: 100 MG
     Route: 065
  9. NEXIUM I.V. [Concomitant]
     Active Substance: ESOMEPRAZOLE SODIUM
     Dosage: 40 MG
     Route: 065
  10. ELATROLET [Concomitant]
     Active Substance: AMITRIPTYLINE HYDROCHLORIDE
     Dosage: 10 MG
     Route: 065

REACTIONS (56)
  - Diarrhoea [Recovered/Resolved]
  - Feeling abnormal [Unknown]
  - Abdominal pain [Recovered/Resolved]
  - Malaise [Unknown]
  - Rhinorrhoea [Recovering/Resolving]
  - Neck pain [Not Recovered/Not Resolved]
  - Diarrhoea [Unknown]
  - Vaginal infection [Unknown]
  - Insomnia [Not Recovered/Not Resolved]
  - Abdominal pain upper [Not Recovered/Not Resolved]
  - Nausea [Recovering/Resolving]
  - Eye infection [Unknown]
  - Bone pain [Not Recovered/Not Resolved]
  - Nausea [Not Recovered/Not Resolved]
  - Weight decreased [Unknown]
  - Viral infection [Unknown]
  - Arthralgia [Not Recovered/Not Resolved]
  - Uterine infection [Unknown]
  - Syncope [Recovered/Resolved]
  - Nervousness [Unknown]
  - Dizziness [Not Recovered/Not Resolved]
  - Paraesthesia [Not Recovered/Not Resolved]
  - Groin pain [Not Recovered/Not Resolved]
  - Dyspepsia [Recovering/Resolving]
  - Swelling [Recovered/Resolved]
  - Dyspnoea [Recovered/Resolved]
  - Feeling cold [Recovered/Resolved]
  - Abdominal pain [Recovered/Resolved]
  - Vision blurred [Recovering/Resolving]
  - Urinary tract infection [Unknown]
  - Constipation [Not Recovered/Not Resolved]
  - Fall [Unknown]
  - Paraesthesia oral [Recovered/Resolved]
  - Uterine inflammation [Unknown]
  - Headache [Not Recovered/Not Resolved]
  - Feeling hot [Not Recovered/Not Resolved]
  - Pyrexia [Recovered/Resolved]
  - Facial paresis [Recovering/Resolving]
  - Vomiting [Recovered/Resolved]
  - Pruritus [Recovered/Resolved]
  - Fatigue [Not Recovered/Not Resolved]
  - Pain in extremity [Not Recovered/Not Resolved]
  - Loss of consciousness [Recovered/Resolved]
  - Abdominal pain upper [Unknown]
  - Vomiting [Recovering/Resolving]
  - Endometrial atrophy [Unknown]
  - Gait disturbance [Not Recovered/Not Resolved]
  - Diarrhoea [Recovered/Resolved]
  - Hypersensitivity [Recovered/Resolved]
  - Dizziness [Recovered/Resolved]
  - Asthenia [Not Recovered/Not Resolved]
  - Hemiplegia [Recovered/Resolved]
  - Syncope [Unknown]
  - Leukocytosis [Unknown]
  - Ovarian cyst [Unknown]
  - Abdominal pain upper [Recovered/Resolved]

NARRATIVE: CASE EVENT DATE: 2018
